FAERS Safety Report 14641827 (Version 1)
Quarter: 2018Q1

REPORT INFORMATION
  Report Type: Spontaneous
  Country: US (occurrence: US)
  Receive Date: 20180315
  Receipt Date: 20180315
  Transmission Date: 20180509
  Serious: Yes (Other)
  Sender: FDA-Public Use
  Company Number: None

PATIENT
  Age: 80 Year
  Sex: Male
  Weight: 87.75 kg

DRUGS (5)
  1. AMPLIDIPONE [Concomitant]
  2. FISH OIL [Concomitant]
     Active Substance: FISH OIL
  3. LOSARTAN. [Concomitant]
     Active Substance: LOSARTAN
  4. VITAMIN [Concomitant]
     Active Substance: VITAMINS
  5. CORICIDIN [Suspect]
     Active Substance: ACETAMINOPHEN\CHLORPHENIRAMINE MALEATE

REACTIONS (1)
  - Hypersensitivity [None]

NARRATIVE: CASE EVENT DATE: 20180301
